FAERS Safety Report 11603913 (Version 2)
Quarter: 2015Q4

REPORT INFORMATION
  Report Type: Spontaneous
  Country: US (occurrence: US)
  Receive Date: 20151007
  Receipt Date: 20151007
  Transmission Date: 20160304
  Serious: Yes (Other)
  Sender: FDA-Public Use
  Company Number: CHPA2015US011684

PATIENT

DRUGS (2)
  1. VOLTAREN [Suspect]
     Active Substance: DICLOFENAC SODIUM
     Indication: ARTHRITIS
     Dosage: UNK
     Route: 061
     Dates: start: 20120613
  2. VOLTAREN [Suspect]
     Active Substance: DICLOFENAC SODIUM
     Indication: ARTHROPATHY
     Dosage: UNK
     Route: 061
     Dates: start: 2015

REACTIONS (6)
  - Arthritis [Unknown]
  - Expired product administered [Unknown]
  - Heart valve calcification [Recovered/Resolved]
  - Dyspnoea [Recovered/Resolved]
  - Drug dispensed to wrong patient [Unknown]
  - Product use issue [Unknown]

NARRATIVE: CASE EVENT DATE: 20120613
